FAERS Safety Report 5140858-4 (Version None)
Quarter: 2006Q4

REPORT INFORMATION
  Report Type: 
  Country: None (occurrence: None)
  Receive Date: 20061025
  Receipt Date: 20060828
  Transmission Date: 20070319
  Serious: Yes (Hospitalization, Other)
  Sender: FDA-Public Use
  Company Number: 2006019977

PATIENT
  Age: 77 Year
  Sex: Female

DRUGS (8)
  1. BEXTRA [Suspect]
     Indication: OSTEOARTHRITIS
     Dosage: 10 MG (10 MG, 1 IN 1 D), ORAL
     Route: 048
     Dates: start: 20041001, end: 20040101
  2. COLCHICINE (COLCHICINE) [Suspect]
     Indication: GOUT
     Dosage: 0.6 MG (0.6 MG, 1 IN 1 D), ORAL
     Route: 048
     Dates: start: 20041001, end: 20041113
  3. ALLOPURINOL [Concomitant]
  4. ZOCOR [Concomitant]
  5. VALSARTAN [Concomitant]
  6. NITROGLYCERIN [Concomitant]
  7. ASA (ACETYSALICYLIC ACID) [Concomitant]
  8. TOPROL-XL [Concomitant]

REACTIONS (4)
  - DERMATITIS EXFOLIATIVE [None]
  - DRUG HYPERSENSITIVITY [None]
  - STEVENS-JOHNSON SYNDROME [None]
  - WHEEZING [None]
